FAERS Safety Report 15957484 (Version 1)
Quarter: 2019Q1

REPORT INFORMATION
  Report Type: Spontaneous
  Country: US (occurrence: US)
  Receive Date: 20190204
  Receipt Date: 20190204
  Transmission Date: 20190417
  Serious: Yes (Hospitalization)
  Sender: FDA-Public Use
  Company Number: None

PATIENT
  Age: 50 Year
  Sex: Female
  Weight: 77.11 kg

DRUGS (1)
  1. GABLOFEN [Suspect]
     Active Substance: BACLOFEN
     Indication: QUADRIPLEGIA
     Dosage: ?          QUANTITY:2000 LNJECTION(S);?

REACTIONS (5)
  - Muscle spasticity [None]
  - Musculoskeletal disorder [None]
  - Paraplegia [None]
  - Headache [None]
  - Irritability [None]

NARRATIVE: CASE EVENT DATE: 20180901
